FAERS Safety Report 5419981-2 (Version None)
Quarter: 2007Q3

REPORT INFORMATION
  Report Type: 
  Country: None (occurrence: None)
  Receive Date: 20070718
  Receipt Date: 20060623
  Transmission Date: 20080115
  Serious: Yes (Other)
  Sender: FDA-Public Use
  Company Number: 2006079456

PATIENT
  Age: 51 Year
  Sex: Male
  Weight: 108.8633 kg

DRUGS (7)
  1. CELEBREX [Suspect]
     Indication: ANALGESIA
     Dosage: (100 MG,)
     Dates: start: 20030101
  2. IBUPROFEN [Concomitant]
  3. NAPROXEN [Concomitant]
  4. ACETYLSALICYLIC ACID SRT [Concomitant]
  5. BEXTRA [Concomitant]
  6. DARVOCET [Concomitant]
  7. ACETAMINOPHEN [Concomitant]

REACTIONS (1)
  - MYOCARDIAL INFARCTION [None]
